FAERS Safety Report 7906602-X (Version None)
Quarter: 2011Q4

REPORT INFORMATION
  Report Type: 
  Country: None (occurrence: None)
  Receive Date: 20111109
  Receipt Date: 20111109
  Transmission Date: 20120403
  Serious: Yes (Hospitalization)
  Sender: FDA-Public Use
  Company Number: None

PATIENT
  Age: 50 Year
  Sex: Male
  Weight: 71.3 kg

DRUGS (11)
  1. ASPIRIN [Concomitant]
  2. OMEPRAZOLE [Concomitant]
  3. POMALIDOMIDE 2MG CAPSULES [Suspect]
     Indication: MULTIPLE MYELOMA
     Dosage: 4MG/DAY DAILY FOR 21 DAYS PO
     Route: 048
     Dates: start: 20110915, end: 20111019
  4. ACYCLOVIR [Concomitant]
  5. COLACE [Concomitant]
  6. BACTRIM [Concomitant]
  7. SENNA [Concomitant]
  8. CRESTOR [Concomitant]
  9. DIFLUCAN [Concomitant]
  10. OXYCODONE HCL [Concomitant]
  11. FOLIC ACID [Concomitant]

REACTIONS (3)
  - BLOOD CREATININE INCREASED [None]
  - PROTEIN TOTAL INCREASED [None]
  - URINE PROTEIN/CREATININE RATIO INCREASED [None]
